FAERS Safety Report 5079194-3 (Version None)
Quarter: 2006Q3

REPORT INFORMATION
  Report Type: 
  Country: None (occurrence: None)
  Receive Date: 20060814
  Receipt Date: 20060803
  Transmission Date: 20061208
  Serious: Yes (Hospitalization)
  Sender: FDA-Public Use
  Company Number: FR-AVENTIS-200612716FR

PATIENT
  Age: 41 Year
  Sex: Female
  Weight: 68 kg

DRUGS (7)
  1. LOVENOX [Suspect]
     Indication: THROMBOSIS PROPHYLAXIS
     Route: 058
     Dates: start: 20060524, end: 20060527
  2. LOVENOX [Suspect]
     Dates: start: 20060530, end: 20060530
  3. INNOHEP [Concomitant]
     Route: 058
     Dates: start: 20060528, end: 20060528
  4. DIPRIVAN [Concomitant]
     Dates: start: 20060524, end: 20060524
  5. DESFLURANE [Concomitant]
     Dates: start: 20060524, end: 20060524
  6. SUFENTA [Concomitant]
     Dates: start: 20060524, end: 20060524
  7. MORPHINE [Concomitant]
     Dates: start: 20060524

REACTIONS (15)
  - ALANINE AMINOTRANSFERASE INCREASED [None]
  - ASPARTATE AMINOTRANSFERASE INCREASED [None]
  - ASTHENIA [None]
  - BLOOD ALKALINE PHOSPHATASE INCREASED [None]
  - CHEST PAIN [None]
  - COLD SWEAT [None]
  - FEELING HOT [None]
  - GAMMA-GLUTAMYLTRANSFERASE INCREASED [None]
  - HEADACHE [None]
  - MALAISE [None]
  - NAUSEA [None]
  - PALPITATIONS [None]
  - PARAESTHESIA [None]
  - SUFFOCATION FEELING [None]
  - TACHYCARDIA [None]
